FAERS Safety Report 8991221 (Version 1)
Quarter: 2012Q4

REPORT INFORMATION
  Report Type: 
  Country: JP (occurrence: JP)
  Receive Date: 20121231
  Receipt Date: 20121231
  Transmission Date: 20130627
  Serious: Yes (Hospitalization)
  Sender: FDA-Public Use
  Company Number: JP-009507513-1212JPN011127

PATIENT

DRUGS (1)
  1. REMERON [Suspect]
     Indication: DEPRESSION
     Dosage: 45 mg, qd
     Route: 048

REACTIONS (1)
  - Epilepsy [Recovering/Resolving]
